FAERS Safety Report 20843908 (Version 1)
Quarter: 2022Q2

REPORT INFORMATION
  Report Type: Other
  Country: GB (occurrence: None)
  Receive Date: 20220518
  Receipt Date: 20220518
  Transmission Date: 20220720
  Serious: Yes (Death, Other)
  Sender: FDA-Public Use
  Company Number: GB-ROCHE-3094485

PATIENT
  Age: 41 Year
  Sex: Male

DRUGS (3)
  1. TOCILIZUMAB [Suspect]
     Active Substance: TOCILIZUMAB
     Indication: COVID-19
     Route: 065
  2. DEXAMETHASONE [Concomitant]
     Active Substance: DEXAMETHASONE
     Indication: COVID-19
  3. COLCHICINE [Concomitant]
     Active Substance: COLCHICINE

REACTIONS (4)
  - Ventricular tachycardia [Fatal]
  - Cardiogenic shock [Unknown]
  - COVID-19 [Unknown]
  - Off label use [Unknown]
